FAERS Safety Report 18762524 (Version 1)
Quarter: 2021Q1

REPORT INFORMATION
  Report Type: Spontaneous
  Country: US (occurrence: US)
  Receive Date: 20210120
  Receipt Date: 20210120
  Transmission Date: 20210419
  Serious: Yes (Death)
  Sender: FDA-Public Use
  Company Number: US-PERRIGO-21US000728

PATIENT
  Age: 96 Year
  Sex: Male

DRUGS (8)
  1. ESCITALOPRAM [Suspect]
     Active Substance: ESCITALOPRAM OXALATE
     Indication: PRODUCT ADMINISTRATION ERROR
     Dosage: UNKNOWN, UNKNOWN
     Route: 048
  2. RANITIDINE HYDROCHLORIDE. [Suspect]
     Active Substance: RANITIDINE HYDROCHLORIDE
     Indication: PRODUCT ADMINISTRATION ERROR
     Dosage: UNKNOWN, UNKNOWN
     Route: 048
  3. BUSPIRONE [Suspect]
     Active Substance: BUSPIRONE HYDROCHLORIDE
     Indication: PRODUCT ADMINISTRATION ERROR
     Dosage: UNKNOWN, UNKNOWN
     Route: 048
  4. DOCUSATE [Suspect]
     Active Substance: DOCUSATE
     Indication: PRODUCT ADMINISTRATION ERROR
     Dosage: UNKNOWN, UNKNOWN
     Route: 048
  5. CLOZAPINE. [Suspect]
     Active Substance: CLOZAPINE
     Indication: PRODUCT ADMINISTRATION ERROR
     Dosage: UNKNOWN, UNKNOWN
     Route: 048
  6. ARIPIPRAZOLE. [Suspect]
     Active Substance: ARIPIPRAZOLE
     Indication: PRODUCT ADMINISTRATION ERROR
     Dosage: UNKNOWN, UNKNOWN
     Route: 048
  7. LEVETIRACETAM. [Suspect]
     Active Substance: LEVETIRACETAM
     Indication: PRODUCT ADMINISTRATION ERROR
     Dosage: UNKNOWN,UNKNOWN
     Route: 048
  8. TOPIRAMATE. [Suspect]
     Active Substance: TOPIRAMATE
     Indication: PRODUCT ADMINISTRATION ERROR
     Dosage: UNKNOWN, UNKNOWN
     Route: 048

REACTIONS (1)
  - Exposure to toxic agent [Fatal]
